FAERS Safety Report 21898769 (Version 1)
Quarter: 2023Q1

REPORT INFORMATION
  Report Type: Spontaneous
  Country: US (occurrence: None)
  Receive Date: 20230122
  Receipt Date: 20230122
  Transmission Date: 20230418
  Serious: Yes (Other)
  Sender: FDA-Public Use
  Company Number: None

PATIENT
  Age: 64 Year
  Sex: Female
  Weight: 99 kg

DRUGS (20)
  1. METHYLPHENIDATE [Suspect]
     Active Substance: METHYLPHENIDATE
     Indication: Attention deficit hyperactivity disorder
     Dosage: OTHER QUANTITY : 1 TABLET(S);?FREQUENCY : DAILY;?
     Route: 048
  2. DEVICE [Concomitant]
     Active Substance: DEVICE
  3. PREGABALIN [Concomitant]
     Active Substance: PREGABALIN
  4. SYMBICORT [Concomitant]
     Active Substance: BUDESONIDE\FORMOTEROL FUMARATE DIHYDRATE
  5. DICLOFENAC [Concomitant]
     Active Substance: DICLOFENAC
  6. XIIDRA [Concomitant]
     Active Substance: LIFITEGRAST
  7. FLUTICASONE [Concomitant]
     Active Substance: FLUTICASONE
  8. METHYLPHENIDATE [Concomitant]
     Active Substance: METHYLPHENIDATE
  9. BACLOFEN [Concomitant]
     Active Substance: BACLOFEN
  10. ATORVASTATIN [Concomitant]
     Active Substance: ATORVASTATIN
  11. JARDIANCE [Concomitant]
     Active Substance: EMPAGLIFLOZIN
  12. DESVENLAFAXINE [Concomitant]
     Active Substance: DESVENLAFAXINE
  13. OZEMPIC [Concomitant]
     Active Substance: SEMAGLUTIDE
  14. FLUCONAZOLE [Concomitant]
     Active Substance: FLUCONAZOLE
  15. LIDOCAINE [Concomitant]
     Active Substance: LIDOCAINE
  16. MINERALS\VITAMINS [Concomitant]
     Active Substance: MINERALS\VITAMINS
  17. FISH OIL [Concomitant]
     Active Substance: FISH OIL
  18. CHONDROITIN SULFATE (BOVINE)\GLUCOSAMINE HYDROCHLORIDE [Concomitant]
     Active Substance: CHONDROITIN SULFATE (BOVINE)\GLUCOSAMINE HYDROCHLORIDE
  19. LOW DOSE ASPIRIN [Concomitant]
     Active Substance: ASPIRIN
  20. SALONPAS PAIN RELIEF [Concomitant]
     Active Substance: MENTHOL\METHYL SALICYLATE

REACTIONS (1)
  - Constipation [None]

NARRATIVE: CASE EVENT DATE: 20220826
